FAERS Safety Report 18908149 (Version 1)
Quarter: 2021Q1

REPORT INFORMATION
  Report Type: Spontaneous
  Country: JP (occurrence: JP)
  Receive Date: 20210218
  Receipt Date: 20210218
  Transmission Date: 20210420
  Serious: Yes (Hospitalization, Other)
  Sender: FDA-Public Use
  Company Number: JP-ASTRAZENECA-2020SF36329

PATIENT
  Age: 73 Year
  Sex: Male
  Weight: 56 kg

DRUGS (12)
  1. ETOPOSIDE. [Suspect]
     Active Substance: ETOPOSIDE
     Indication: SMALL CELL LUNG CANCER
     Dosage: 100 MG/M 2 MILLIGRAM(S)/SQ. DAY 1, 2, AND 3 OF EACH COURSE
     Route: 041
     Dates: start: 20200929
  2. CISPLATIN. [Suspect]
     Active Substance: CISPLATIN
     Indication: SMALL CELL LUNG CANCER
     Route: 041
     Dates: start: 20200929
  3. SEISHOKU [Concomitant]
     Active Substance: SODIUM CHLORIDE
     Dosage: 500?1500ML
     Route: 065
     Dates: start: 20200928
  4. AMBROXOL HYDROCHLORIDE OD [Concomitant]
     Dosage: 45 MG AFTER SUPPER
     Route: 048
     Dates: start: 20200908, end: 20201026
  5. POTASSIUM CHLORIDE. [Concomitant]
     Active Substance: POTASSIUM CHLORIDE
     Indication: INAPPROPRIATE ANTIDIURETIC HORMONE SECRETION
     Route: 065
     Dates: start: 20200928, end: 20201015
  6. TSUMURA MASHININGAN EXTRACT [Concomitant]
     Route: 048
  7. IMFINZI [Suspect]
     Active Substance: DURVALUMAB
     Indication: SMALL CELL LUNG CANCER
     Route: 041
     Dates: start: 20200929
  8. AMLODIPINE [Concomitant]
     Active Substance: AMLODIPINE BESYLATE
     Indication: HYPERTENSION
     Dosage: 2.5 MG AFTER LUNCH
     Route: 048
     Dates: start: 20200703
  9. TENELIA [Concomitant]
     Active Substance: TENELIGLIPTIN
     Indication: TYPE 2 DIABETES MELLITUS
     Route: 048
     Dates: start: 20201027
  10. CARBAZOCHROME SODIUM SULFONATE HYDRATE [Concomitant]
     Indication: HAEMOPTYSIS
     Route: 048
     Dates: start: 20201126, end: 20201130
  11. HIRUOID [Concomitant]
     Indication: DRY SKIN
     Dosage: 0.2G?0.5G
     Route: 062
     Dates: start: 20201027
  12. HUSTAZOL [Concomitant]
     Route: 048
     Dates: start: 20201006

REACTIONS (9)
  - Nausea [Recovered/Resolved]
  - Pneumonia [Recovering/Resolving]
  - Platelet count decreased [Recovered/Resolved]
  - Prostatomegaly [Unknown]
  - Neutrophil count decreased [Recovered/Resolved]
  - Constipation [Not Recovered/Not Resolved]
  - Anaemia [Recovered/Resolved]
  - Haemoptysis [Recovered/Resolved]
  - Febrile neutropenia [Recovered/Resolved]

NARRATIVE: CASE EVENT DATE: 2020
